FAERS Safety Report 22995646 (Version 2)
Quarter: 2023Q4

REPORT INFORMATION
  Report Type: Spontaneous
  Country: US (occurrence: US)
  Receive Date: 20230927
  Receipt Date: 20231113
  Transmission Date: 20240110
  Serious: Yes (Hospitalization)
  Sender: FDA-Public Use
  Company Number: US-BAYER-2023A131807

PATIENT
  Age: 56 Year
  Sex: Male

DRUGS (1)
  1. ADEMPAS [Suspect]
     Active Substance: RIOCIGUAT
     Indication: Pulmonary arterial hypertension
     Dosage: 2 MG, TID
     Route: 048
     Dates: start: 20220524

REACTIONS (6)
  - Papilloma excision [None]
  - Anogenital dysplasia [None]
  - Haemorrhage [None]
  - Pain [None]
  - Skin hyperpigmentation [None]
  - Anogenital warts [None]

NARRATIVE: CASE EVENT DATE: 20230913
